FAERS Safety Report 5895906-0 (Version None)
Quarter: 2008Q3

REPORT INFORMATION
  Report Type: 
  Country: None (occurrence: None)
  Receive Date: 20080924
  Receipt Date: 20080919
  Transmission Date: 20090109
  Serious: Yes (Other)
  Sender: FDA-Public Use
  Company Number: US-ELI_LILLY_AND_COMPANY-US200809004519

PATIENT
  Sex: Female

DRUGS (3)
  1. HUMULIN N [Suspect]
     Indication: DIABETES MELLITUS
     Dosage: UNK, UNK
     Dates: start: 19880101
  2. PLAVIX [Concomitant]
  3. KEPPRA [Concomitant]
     Indication: CONVULSION

REACTIONS (8)
  - BLINDNESS UNILATERAL [None]
  - CATARACT [None]
  - CEREBROVASCULAR ACCIDENT [None]
  - CONVULSION [None]
  - MENTAL IMPAIRMENT [None]
  - MYODESOPSIA [None]
  - SPEECH DISORDER [None]
  - VISUAL IMPAIRMENT [None]
